FAERS Safety Report 10367731 (Version 2)
Quarter: 2014Q4

REPORT INFORMATION
  Report Type: Spontaneous
  Country: US (occurrence: US)
  Receive Date: 20140807
  Receipt Date: 20141106
  Transmission Date: 20150528
  Serious: Yes (Other)
  Sender: FDA-Public Use
  Company Number: US-JNJFOC-20140717743

PATIENT

DRUGS (1)
  1. NESIRITIDE [Suspect]
     Active Substance: NESIRITIDE
     Indication: SURGERY
     Dosage: 2 UG/KG FOLLOWED BY AN INFUSION OF 0.015 UG/KG
     Route: 042

REACTIONS (17)
  - Acute kidney injury [Unknown]
  - Hyperglycaemia [Unknown]
  - Blood lactic acid increased [Unknown]
  - Hypotension [Unknown]
  - Product use issue [Unknown]
  - Product quality issue [None]
  - Adverse event [Unknown]
  - Thrombocytopenia [Unknown]
  - Coagulopathy [Unknown]
  - Drug ineffective for unapproved indication [Unknown]
  - Pleural effusion [Unknown]
  - Hypoglycaemia [Unknown]
  - Hepatic function abnormal [Unknown]
  - Hyperthermia [Unknown]
  - Hypokalaemia [Unknown]
  - Drug ineffective [Unknown]
  - Hypothermia [Unknown]
